FAERS Safety Report 4754079-8 (Version None)
Quarter: 2005Q3

REPORT INFORMATION
  Report Type: 
  Country: None (occurrence: None)
  Receive Date: 20050826
  Receipt Date: 20050718
  Transmission Date: 20060218
  Serious: Yes (Other)
  Sender: FDA-Public Use
  Company Number: US-MERCK-0507USA02282

PATIENT
  Age: 62 Year
  Sex: Female
  Weight: 57 kg

DRUGS (5)
  1. VIOXX [Suspect]
     Indication: BACK PAIN
     Route: 048
     Dates: start: 19991201, end: 20020801
  2. VIOXX [Suspect]
     Route: 048
     Dates: start: 19991201, end: 20020801
  3. ESTRATEST [Concomitant]
     Route: 065
  4. OS-CAL D [Concomitant]
     Route: 065
  5. VERAPAMIL [Concomitant]
     Route: 065

REACTIONS (3)
  - CEREBROVASCULAR ACCIDENT [None]
  - GASTRIC ULCER [None]
  - RENAL FAILURE [None]
